FAERS Safety Report 22400061 (Version 1)
Quarter: 2023Q2

REPORT INFORMATION
  Report Type: Spontaneous
  Country: MW (occurrence: MW)
  Receive Date: 20230602
  Receipt Date: 20230602
  Transmission Date: 20230722
  Serious: Yes (Life-Threatening, Other)
  Sender: FDA-Public Use
  Company Number: MW-BAXTER-2023BAX022968

PATIENT
  Age: 65 Year
  Sex: Female
  Weight: 50 kg

DRUGS (14)
  1. ISOFLURANE [Suspect]
     Active Substance: ISOFLURANE
     Indication: Maintenance of anaesthesia
     Dosage: DOSE 1- 1.5%, AT UNSPECIFIED FREQUENCY
     Dates: start: 20230412, end: 20230412
  2. FENTANYL [Suspect]
     Active Substance: FENTANYL
     Indication: Analgesic therapy
     Dosage: 200 UG (GAMMAS) AT UNSPECIFIED FREQUENCY
     Route: 065
     Dates: start: 20230412, end: 20230412
  3. ATRACURIUM [Suspect]
     Active Substance: ATRACURIUM
     Indication: Muscle relaxant therapy
     Dosage: 75 MF AT UNSPECIFIED FREQUENCY
     Route: 065
     Dates: start: 20230412, end: 20230412
  4. PROPOFOL [Suspect]
     Active Substance: PROPOFOL
     Indication: Sedative therapy
     Dosage: 200 MG AT UNSPECIFIED FREQUENCY
     Route: 065
     Dates: start: 20230412, end: 20230412
  5. LIDOCAINE [Suspect]
     Active Substance: LIDOCAINE
     Indication: Induction of anaesthesia
     Dosage: UNK
     Route: 065
     Dates: start: 20230412
  6. CEFAZOLIN SODIUM [Suspect]
     Active Substance: CEFAZOLIN SODIUM
     Dosage: UNK
     Route: 065
     Dates: start: 20230412
  7. MAGNESIUM [Suspect]
     Active Substance: MAGNESIUM
     Dosage: UNK
     Route: 065
     Dates: start: 20230412
  8. KETAMINE [Suspect]
     Active Substance: KETAMINE
     Dosage: UNK
     Route: 065
     Dates: start: 20230412
  9. METOCLOPRAMIDE [Suspect]
     Active Substance: METOCLOPRAMIDE
     Dosage: UNK
     Route: 065
     Dates: start: 20230412
  10. DEXAMETHASONE [Suspect]
     Active Substance: DEXAMETHASONE
     Dosage: UNK
     Route: 065
     Dates: start: 20230412
  11. ONDANSETRON [Suspect]
     Active Substance: ONDANSETRON
     Dosage: UNK
     Route: 065
     Dates: start: 20230412
  12. DICLOFENAC [Suspect]
     Active Substance: DICLOFENAC
     Dosage: UNK
     Route: 065
     Dates: start: 20230412
  13. HYDROCHLOROTHIAZIDE [Suspect]
     Active Substance: HYDROCHLOROTHIAZIDE
     Indication: Hypertension
     Dosage: UNK
     Route: 065
  14. LABETALOL [Suspect]
     Active Substance: LABETALOL\LABETALOL HYDROCHLORIDE
     Indication: Hypertension
     Dosage: UNK
     Route: 065

REACTIONS (2)
  - Bradycardia [Recovering/Resolving]
  - Chills [Recovering/Resolving]

NARRATIVE: CASE EVENT DATE: 20230412
